FAERS Safety Report 13372387 (Version 1)
Quarter: 2017Q1

REPORT INFORMATION
  Report Type: Spontaneous
  Country: US (occurrence: US)
  Receive Date: 20170327
  Receipt Date: 20170327
  Transmission Date: 20170429
  Serious: No
  Sender: FDA-Public Use
  Company Number: US-INTERPRAG-PM-OCA2017-00048

PATIENT

DRUGS (2)
  1. OCALIVA [Suspect]
     Active Substance: OBETICHOLIC ACID
     Dosage: UNK
     Dates: start: 201701
  2. URSODIOL. [Concomitant]
     Active Substance: URSODIOL
     Dosage: UNK
     Dates: start: 201701

REACTIONS (5)
  - Pruritus [Unknown]
  - Arthralgia [Unknown]
  - Headache [Not Recovered/Not Resolved]
  - Somnolence [Unknown]
  - Fatigue [Unknown]

NARRATIVE: CASE EVENT DATE: 201701
